FAERS Safety Report 13505627 (Version 3)
Quarter: 2023Q1

REPORT INFORMATION
  Report Type: Report from Study
  Country: US (occurrence: US)
  Receive Date: 20170502
  Receipt Date: 20230310
  Transmission Date: 20230417
  Serious: Yes (Other)
  Sender: FDA-Public Use
  Company Number: US-JAZZ-2017-US-005379

PATIENT
  Sex: Female

DRUGS (15)
  1. XYREM [Suspect]
     Active Substance: SODIUM OXYBATE
     Indication: Periodic limb movement disorder
     Dosage: 2.25 GRAM, BID
     Route: 048
     Dates: start: 20120315, end: 201204
  2. XYREM [Suspect]
     Active Substance: SODIUM OXYBATE
     Dosage: DOSE ADJUSTMENT
     Route: 048
     Dates: start: 201204, end: 201612
  3. XYREM [Suspect]
     Active Substance: SODIUM OXYBATE
     Dosage: 4.5 GRAM, BID
     Route: 048
     Dates: start: 201612
  4. CALCIUM CARBONATE\CHOLECALCIFEROL [Concomitant]
     Active Substance: CALCIUM CARBONATE\CHOLECALCIFEROL
     Indication: Product used for unknown indication
     Dosage: UNK
     Dates: start: 20151027
  5. DIETARY SUPPLEMENT [Concomitant]
     Active Substance: DIETARY SUPPLEMENT
     Indication: Product used for unknown indication
     Dosage: UNK
     Dates: start: 20151027
  6. VITAMIN C [Concomitant]
     Active Substance: ASCORBIC ACID
     Indication: Product used for unknown indication
     Dosage: UNK
     Dates: start: 20151027
  7. ZOLOFT [Concomitant]
     Active Substance: SERTRALINE HYDROCHLORIDE
     Indication: Product used for unknown indication
     Dosage: UNK
     Dates: start: 20151027
  8. ANASTROZOLE [Concomitant]
     Active Substance: ANASTROZOLE
     Indication: Product used for unknown indication
     Dosage: UNK
     Dates: start: 20151022
  9. OMEPRAZOLE [Concomitant]
     Active Substance: OMEPRAZOLE
     Indication: Product used for unknown indication
     Dosage: UNK
     Dates: start: 20151022
  10. ALENDRONATE SODIUM [Concomitant]
     Active Substance: ALENDRONATE SODIUM
     Indication: Product used for unknown indication
     Dosage: UNK
     Dates: start: 20150423
  11. FEXOFENADINE HCL [Concomitant]
     Active Substance: FEXOFENADINE HYDROCHLORIDE
     Indication: Product used for unknown indication
     Dosage: UNK
     Dates: start: 20130613
  12. TEARS NATURAL FREE                 /00134201/ [Concomitant]
     Indication: Product used for unknown indication
     Dosage: UNK
     Dates: start: 20130613
  13. SINGULAIR [Concomitant]
     Active Substance: MONTELUKAST SODIUM
     Indication: Product used for unknown indication
     Dosage: UNK
     Dates: start: 20130503
  14. ACETAMINOPHEN [Concomitant]
     Active Substance: ACETAMINOPHEN
     Indication: Product used for unknown indication
     Dosage: UNK
  15. CHONDROITIN SULFATE (BOVINE)\GLUCOSAMINE SULFATE [Concomitant]
     Active Substance: CHONDROITIN SULFATE (BOVINE)\GLUCOSAMINE SULFATE
     Indication: Product used for unknown indication

REACTIONS (1)
  - Cataract [Unknown]
